FAERS Safety Report 10570452 (Version 1)
Quarter: 2014Q4

REPORT INFORMATION
  Report Type: Spontaneous
  Country: US (occurrence: US)
  Receive Date: 20141107
  Receipt Date: 20141107
  Transmission Date: 20150529
  Serious: Yes (Other)
  Sender: FDA-Public Use
  Company Number: US-JNJFOC-20141100613

PATIENT
  Sex: Male

DRUGS (1)
  1. XARELTO [Suspect]
     Active Substance: RIVAROXABAN
     Indication: PRODUCT USED FOR UNKNOWN INDICATION
     Route: 048
     Dates: end: 20141028

REACTIONS (4)
  - Blood urine present [Unknown]
  - Gastrointestinal haemorrhage [Unknown]
  - Intracardiac thrombus [Unknown]
  - Haemorrhage [Unknown]

NARRATIVE: CASE EVENT DATE: 201410
